FAERS Safety Report 17336773 (Version 3)
Quarter: 2020Q3

REPORT INFORMATION
  Report Type: Report from Study
  Country: BR (occurrence: BR)
  Receive Date: 20200129
  Receipt Date: 20200708
  Transmission Date: 20201104
  Serious: Yes (Hospitalization, Other)
  Sender: FDA-Public Use
  Company Number: PHHY2019BR163295

PATIENT
  Age: 43 Year
  Sex: Female

DRUGS (4)
  1. CYCLOSPORINE. [Suspect]
     Active Substance: CYCLOSPORINE
     Dosage: UNK
     Route: 065
  2. CYCLOSPORINE. [Suspect]
     Active Substance: CYCLOSPORINE
     Indication: PSORIASIS
     Dosage: UNK
     Route: 065
     Dates: start: 201903, end: 201905
  3. COSENTYX [Suspect]
     Active Substance: SECUKINUMAB
     Indication: PSORIATIC ARTHROPATHY
     Dosage: UNK
     Route: 065
     Dates: start: 20190509
  4. COSENTYX [Suspect]
     Active Substance: SECUKINUMAB
     Dosage: UNK
     Route: 065
     Dates: start: 20190719

REACTIONS (10)
  - Lymphoma [Unknown]
  - Pain [Not Recovered/Not Resolved]
  - Pyrexia [Recovered/Resolved]
  - Inflammation [Not Recovered/Not Resolved]
  - Injury [Recovered/Resolved]
  - Sinusitis [Recovered/Resolved]
  - Sinus congestion [Recovered/Resolved]
  - Neoplasm malignant [Unknown]
  - Nasal congestion [Recovered/Resolved]
  - Sjogren^s syndrome [Recovered/Resolved]

NARRATIVE: CASE EVENT DATE: 201907
